FAERS Safety Report 13087779 (Version 1)
Quarter: 2017Q1

REPORT INFORMATION
  Report Type: Spontaneous
  Country: US (occurrence: US)
  Receive Date: 20170105
  Receipt Date: 20170105
  Transmission Date: 20170428
  Serious: Yes (Other)
  Sender: FDA-Public Use
  Company Number: US-009507513-1612USA015258

PATIENT
  Age: 77 Year
  Sex: Female

DRUGS (8)
  1. MELATONIN [Concomitant]
     Active Substance: MELATONIN
     Indication: SLEEP DISORDER
     Dosage: 5 MG X 3 AT BED TIME
  2. REMERON [Concomitant]
     Active Substance: MIRTAZAPINE
     Dosage: 0.5-1 AT BED TIME
     Route: 048
  3. RYTARY [Suspect]
     Active Substance: CARBIDOPA\LEVODOPA
  4. TRAZODONE HYDROCHLORIDE. [Concomitant]
     Active Substance: TRAZODONE HYDROCHLORIDE
     Indication: SLEEP DISORDER
     Dosage: 0.5-1 AT BED TIME
     Route: 048
     Dates: start: 2016
  5. SINEMET CR [Suspect]
     Active Substance: CARBIDOPA\LEVODOPA
     Route: 048
  6. AZILECT [Suspect]
     Active Substance: RASAGILINE MESYLATE
  7. CLONAZEPAM. [Concomitant]
     Active Substance: CLONAZEPAM
     Indication: SLEEP DISORDER
     Dosage: 0.5-1 AT BED TIME
  8. MIRAPEX [Concomitant]
     Active Substance: PRAMIPEXOLE DIHYDROCHLORIDE
     Dosage: 0.5 3/DAY

REACTIONS (4)
  - Tooth fracture [Unknown]
  - Drug administration error [Unknown]
  - Dyskinesia [Unknown]
  - Drug prescribing error [Unknown]
